FAERS Safety Report 5146305-0 (Version None)
Quarter: 2006Q4

REPORT INFORMATION
  Report Type: 
  Country: None (occurrence: None)
  Receive Date: 20061108
  Receipt Date: 20061026
  Transmission Date: 20070319
  Serious: Yes (Other)
  Sender: FDA-Public Use
  Company Number: ES-ELI_LILLY_AND_COMPANY-ES200610004622

PATIENT
  Age: 61 Year
  Sex: Female
  Weight: 60 kg

DRUGS (3)
  1. CYMBALTA [Suspect]
     Indication: MAJOR DEPRESSION
     Dosage: UNK, DAILY (1/D)
     Route: 048
     Dates: start: 20060531, end: 20060613
  2. ETUMINA [Concomitant]
     Dosage: UNK, DAILY (1/D)
     Route: 048
     Dates: start: 20060327
  3. TORSEMIDE [Concomitant]
     Dosage: UNK, DAILY (1/D)
     Route: 048
     Dates: start: 20060327

REACTIONS (2)
  - HYPERTENSION [None]
  - TINNITUS [None]
